FAERS Safety Report 10236245 (Version 1)
Quarter: 2014Q1

REPORT INFORMATION
  Report Type: Spontaneous
  Country: US (occurrence: None)
  Receive Date: 20140306
  Receipt Date: 20140306
  Transmission Date: 20141002
  Serious: Yes (Other)
  Sender: FDA-Public Use
  Company Number: 163-21880-13030168

PATIENT
  Age: 74 Year
  Sex: Female

DRUGS (9)
  1. REVLIMID (LENALIDOMIDE) (10 MILLIGRAM, CAPSULES) [Suspect]
     Indication: PLASMA CELL MYELOMA
     Dosage: 10 MG, 21 IN 21 D, PO
     Route: 048
     Dates: start: 20080411
  2. CALCIUM + VITAMIN D (LEKOVIT CA) (UNKNOWN) [Concomitant]
  3. CELEBREX (CELECOXIB) (UNKNOWN) [Concomitant]
  4. DICLOFENAC SODIUM (DICLOFENAC SODIUM) (UNKNOWN) [Concomitant]
  5. DYAZIDE (DYAZIDE) (UNKNOWN) [Concomitant]
  6. FERRO-SEQUELS (FERRO-SEQUELS) (UNKNOWN) [Concomitant]
  7. JANUVIA (SITAGLIPTIN PHOSPHATE) (UNKNOWN) [Concomitant]
  8. LIDODERM (LIDOCANE) (UNKNOWN) [Concomitant]
  9. LOVASTATIN (LOVASTATIN) (UNKNOWN) [Concomitant]

REACTIONS (1)
  - Protein total increased [None]
